FAERS Safety Report 4665360-5 (Version None)
Quarter: 2005Q2

REPORT INFORMATION
  Report Type: 
  Country: None (occurrence: None)
  Receive Date: 20050517
  Receipt Date: 20050415
  Transmission Date: 20051028
  Serious: Yes (Other)
  Sender: FDA-Public Use
  Company Number: S05-USA-01929-01

PATIENT
  Age: 85 Year
  Sex: Female

DRUGS (6)
  1. NAMENDA [Suspect]
     Indication: DEMENTIA ALZHEIMER'S TYPE
     Dosage: 5 MG QD PO
     Route: 048
     Dates: start: 20050413
  2. CLONIDINE [Concomitant]
  3. FUROSEMIDE [Concomitant]
  4. ZOLOFT [Concomitant]
  5. ARICEPT [Concomitant]
  6. THYROID (NOS) [Concomitant]

REACTIONS (1)
  - HYPERTENSION [None]
